FAERS Safety Report 5751039-5 (Version None)
Quarter: 2008Q2

REPORT INFORMATION
  Report Type: 
  Country: None (occurrence: None)
  Receive Date: 20080528
  Receipt Date: 20080520
  Transmission Date: 20081010
  Serious: Yes (Hospitalization)
  Sender: FDA-Public Use
  Company Number: FR-AVENTIS-200811824FR

PATIENT
  Age: 74 Year
  Sex: Female

DRUGS (3)
  1. SOLUPRED                           /00016201/ [Suspect]
     Indication: BRONCHITIS
     Route: 048
     Dates: start: 20080201, end: 20080201
  2. KETEK [Suspect]
     Indication: BRONCHITIS
     Route: 048
     Dates: start: 20080208, end: 20080213
  3. PREVISCAN                          /00789001/ [Suspect]
     Indication: DRUG USE FOR UNKNOWN INDICATION
     Route: 048
     Dates: end: 20080216

REACTIONS (11)
  - ABDOMINAL PAIN [None]
  - COUGH [None]
  - DRUG INTERACTION [None]
  - ECCHYMOSIS [None]
  - FALL [None]
  - HAEMATOMA [None]
  - HAEMOGLOBIN DECREASED [None]
  - INTERNATIONAL NORMALISED RATIO INCREASED [None]
  - LACERATION [None]
  - MUSCLE HAEMORRHAGE [None]
  - MUSCLE INJURY [None]
